FAERS Safety Report 4704382-2 (Version None)
Quarter: 2005Q2

REPORT INFORMATION
  Report Type: 
  Country: None (occurrence: None)
  Receive Date: 20050630
  Receipt Date: 20050617
  Transmission Date: 20051028
  Serious: Yes (Hospitalization)
  Sender: FDA-Public Use
  Company Number: CA-GLAXOSMITHKLINE-A0563206A

PATIENT
  Age: 60 Year
  Sex: Male
  Weight: 76.5 kg

DRUGS (4)
  1. DUTASTERIDE [Suspect]
     Indication: PROSTATE CANCER
     Dosage: .5MG PER DAY
     Route: 048
     Dates: start: 20030521
  2. TAMSULOSIN [Concomitant]
     Indication: BENIGN PROSTATIC HYPERPLASIA
     Dosage: .4MG PER DAY
     Route: 048
     Dates: start: 20020101
  3. CIALIS [Concomitant]
     Indication: ERECTILE DYSFUNCTION
     Dosage: 20MG AS REQUIRED
     Route: 048
     Dates: start: 20040526
  4. DICYCLOMINE [Concomitant]
     Indication: FLANK PAIN
     Dosage: 10MG AS REQUIRED
     Route: 048
     Dates: start: 20050311

REACTIONS (2)
  - MYOCARDIAL INFARCTION [None]
  - PERICARDITIS [None]
